FAERS Safety Report 4516167-0 (Version None)
Quarter: 2004Q4

REPORT INFORMATION
  Report Type: 
  Country: None (occurrence: None)
  Receive Date: 20041202
  Receipt Date: 20040629
  Transmission Date: 20050328
  Serious: Yes (Other)
  Sender: FDA-Public Use
  Company Number: 200412529FR

PATIENT
  Age: 63 Year
  Sex: Male
  Weight: 64.2 kg

DRUGS (8)
  1. ARAVA [Suspect]
     Indication: RHEUMATOID ARTHRITIS
     Route: 048
     Dates: start: 20040205, end: 20041123
  2. CORTANCYL [Suspect]
     Indication: RHEUMATOID ARTHRITIS
     Route: 048
     Dates: start: 20040101, end: 20040101
  3. TOPALGIC [Concomitant]
     Route: 048
  4. RIVOTRIL [Concomitant]
     Route: 048
  5. COMBIVENT [Concomitant]
     Route: 055
  6. STILNOX [Concomitant]
     Route: 048
  7. OMEPRAZOLE [Concomitant]
     Route: 048
  8. FOSAMAX [Concomitant]
     Route: 048
     Dates: start: 20041025

REACTIONS (3)
  - LUNG NEOPLASM MALIGNANT [None]
  - POLYNEUROPATHY [None]
  - SQUAMOUS CELL CARCINOMA [None]
